FAERS Safety Report 9057839 (Version 1)
Quarter: 2013Q1

REPORT INFORMATION
  Report Type: Spontaneous
  Country: GB (occurrence: None)
  Receive Date: 20130204
  Receipt Date: 20130204
  Transmission Date: 20140127
  Serious: Yes (Other)
  Sender: FDA-Public Use
  Company Number: None

PATIENT
  Age: 29 Year
  Sex: Female
  Weight: 58 kg

DRUGS (1)
  1. ROGAINE EXTRA STRENGTH [Suspect]
     Indication: HAIR DISORDER
     Dates: start: 20120601, end: 20120612

REACTIONS (1)
  - Alopecia [None]
